FAERS Safety Report 13610315 (Version 1)
Quarter: 2017Q2

REPORT INFORMATION
  Report Type: Spontaneous
  Country: US (occurrence: US)
  Receive Date: 20170602
  Receipt Date: 20170602
  Transmission Date: 20170830
  Serious: Yes (Disabling)
  Sender: FDA-Public Use
  Company Number: None

PATIENT
  Age: 72 Year
  Sex: Male
  Weight: 93.6 kg

DRUGS (4)
  1. VITAMIN B12 [Concomitant]
     Active Substance: CYANOCOBALAMIN
  2. ALPRAZOLAM. [Concomitant]
     Active Substance: ALPRAZOLAM
  3. ALPHAGAN P [Suspect]
     Active Substance: BRIMONIDINE TARTRATE
     Indication: GLAUCOMA
     Route: 047
     Dates: start: 20160101, end: 20160303
  4. VITAMIN/MINERAL SUPPLEMENT WITH MAGNESIUM CARBONATE, CALCIUM CARBONATE AND FOLIC ACID [Concomitant]
     Active Substance: CALCIUM CARBONATE\FOLIC ACID\MAGNESIUM CARBONATE

REACTIONS (4)
  - Dizziness [None]
  - Vestibular disorder [None]
  - Fall [None]
  - Balance disorder [None]

NARRATIVE: CASE EVENT DATE: 20160506
